FAERS Safety Report 19444309 (Version 6)
Quarter: 2021Q3

REPORT INFORMATION
  Report Type: Spontaneous
  Country: US (occurrence: US)
  Receive Date: 20210621
  Receipt Date: 20210922
  Transmission Date: 20211014
  Serious: No
  Sender: FDA-Public Use
  Company Number: US-SA-2021SA201954

PATIENT
  Age: 43 Year
  Sex: Male

DRUGS (1)
  1. CABLIVI [Suspect]
     Active Substance: CAPLACIZUMAB-YHDP
     Indication: THROMBOTIC MICROANGIOPATHY
     Dosage: 11 MG, QD
     Route: 058
     Dates: start: 20210602

REACTIONS (7)
  - Product dose omission issue [Unknown]
  - Blood pressure increased [Unknown]
  - Treatment noncompliance [Unknown]
  - Adverse drug reaction [Unknown]
  - ADAMTS13 activity abnormal [Unknown]
  - COVID-19 [Unknown]
  - Fatigue [Unknown]

NARRATIVE: CASE EVENT DATE: 2021
